FAERS Safety Report 8988915 (Version 2)
Quarter: 2013Q1

REPORT INFORMATION
  Report Type: Report from Study
  Country: AU (occurrence: AU)
  Receive Date: 20121228
  Receipt Date: 20130206
  Transmission Date: 20140127
  Serious: Yes (Other)
  Sender: FDA-Public Use
  Company Number: AU-ROCHE-1173724

PATIENT
  Age: 59 Year
  Sex: Female

DRUGS (4)
  1. ACTEMRA [Suspect]
     Indication: RHEUMATOID ARTHRITIS
     Route: 042
     Dates: start: 20120928
  2. PREDNISOLONE [Concomitant]
     Indication: RHEUMATOID ARTHRITIS
     Route: 048
  3. NEXIUM [Concomitant]
     Route: 048
  4. ARAVA [Concomitant]
     Indication: RHEUMATOID ARTHRITIS
     Route: 048
     Dates: end: 20121217

REACTIONS (3)
  - Rash erythematous [Recovering/Resolving]
  - Pruritus [Recovering/Resolving]
  - Hordeolum [Recovering/Resolving]
